FAERS Safety Report 6381349-2 (Version None)
Quarter: 2009Q3

REPORT INFORMATION
  Report Type: 
  Country: None (occurrence: None)
  Receive Date: 20090923
  Receipt Date: 20090911
  Transmission Date: 20100115
  Serious: Yes (Disabling)
  Sender: FDA-Public Use
  Company Number: 2009AL006059

PATIENT
  Age: 53 Year
  Sex: Male

DRUGS (22)
  1. METOCLOPRAMIDE [Suspect]
     Indication: NAUSEA
     Dosage: 2.5 MG; IV
     Route: 042
     Dates: start: 20090731, end: 20090805
  2. HALOPERIDOL [Concomitant]
  3. CYCLOSPORINE [Concomitant]
  4. MYCOPHENOLIC ACID [Concomitant]
  5. PRAZSOIN HCL [Concomitant]
  6. ALFACALCIDOL [Concomitant]
  7. LISINOPRIL [Concomitant]
  8. BENDROFLUMETHIAZIDE [Concomitant]
  9. TOLTERODINE TARTRATE [Concomitant]
  10. OMEPRAZOLE [Concomitant]
  11. FERROUS SULFATE TAB [Concomitant]
  12. VITAMIN B COMPLEX CAP [Concomitant]
  13. PREDNISOLONE [Concomitant]
  14. ALLOPURINOL [Concomitant]
  15. DALTEPARIN [Concomitant]
  16. THIAMINE HCL [Concomitant]
  17. PYRAZINAMIDE [Concomitant]
  18. PYRIDOXINE [Concomitant]
  19. ETHAMBUTOL HYDROCHLORIDE [Concomitant]
  20. ZOPICLONE [Concomitant]
  21. CYCLIZINE [Concomitant]
  22. ACETYLSALICYLIC ACID [Concomitant]

REACTIONS (2)
  - DYSPHAGIA [None]
  - PARKINSONISM [None]
